FAERS Safety Report 7521497-4 (Version None)
Quarter: 2011Q2

REPORT INFORMATION
  Report Type: 
  Country: None (occurrence: None)
  Receive Date: 20110603
  Receipt Date: 20110524
  Transmission Date: 20111010
  Serious: Yes (Other)
  Sender: FDA-Public Use
  Company Number: JP-JNJFOC-20110102617

PATIENT
  Sex: Female
  Weight: 97 kg

DRUGS (36)
  1. DOXORUBICIN HCL [Suspect]
     Dosage: CYCLE 3
     Route: 042
     Dates: start: 20091019, end: 20091019
  2. PYDOXAL [Concomitant]
     Indication: PALMAR-PLANTAR ERYTHRODYSAESTHESIA SYNDROME
     Route: 048
     Dates: end: 20100530
  3. DECADRON [Concomitant]
     Route: 042
     Dates: start: 20090914, end: 20091214
  4. SELBEX [Concomitant]
     Indication: PROPHYLAXIS
     Route: 048
     Dates: start: 20100426, end: 20100525
  5. PARAPLATIN [Suspect]
     Route: 042
     Dates: start: 20090817, end: 20090817
  6. DECADRON [Concomitant]
     Indication: NAUSEA
     Route: 048
     Dates: end: 20100429
  7. DECADRON [Concomitant]
     Indication: PROPHYLAXIS
     Route: 048
     Dates: end: 20100429
  8. ALPRAZOLAM [Concomitant]
     Indication: PROPHYLAXIS
     Route: 048
     Dates: end: 20100502
  9. ALPRAZOLAM [Concomitant]
     Indication: DECREASED APPETITE
     Route: 048
     Dates: end: 20100502
  10. PRIMPERAN TAB [Concomitant]
     Indication: PROPHYLAXIS
     Route: 048
     Dates: start: 20090914, end: 20100502
  11. PRIMPERAN TAB [Concomitant]
     Indication: NAUSEA
     Route: 048
     Dates: start: 20090914, end: 20100502
  12. DOXORUBICIN HCL [Suspect]
     Dosage: CYCLE 2
     Route: 042
     Dates: start: 20090914, end: 20090914
  13. DECADRON [Concomitant]
     Route: 048
     Dates: end: 20100121
  14. DECADRON [Concomitant]
     Route: 048
     Dates: end: 20100121
  15. MAGNESIUM SULFATE [Concomitant]
     Indication: CONSTIPATION
     Route: 048
     Dates: start: 20100118
  16. ZANTAC [Concomitant]
     Route: 042
     Dates: start: 20090817, end: 20090817
  17. LAXOBERON [Concomitant]
     Indication: CONSTIPATION
     Route: 048
     Dates: start: 20091019
  18. PYDOXAL [Concomitant]
     Indication: PROPHYLAXIS
     Route: 048
     Dates: end: 20100530
  19. DECADRON [Concomitant]
     Route: 042
     Dates: start: 20100118, end: 20100426
  20. ZOFRAN [Concomitant]
     Indication: PROPHYLAXIS
     Route: 042
     Dates: start: 20090914, end: 20100426
  21. ZOFRAN [Concomitant]
     Route: 042
     Dates: start: 20090817, end: 20100817
  22. DOXORUBICIN HCL [Suspect]
     Dosage: CYCLE 5
     Route: 042
     Dates: start: 20091214, end: 20091214
  23. MAGNESIUM SULFATE [Concomitant]
     Route: 048
     Dates: start: 20090914, end: 20091116
  24. ZANTAC [Concomitant]
     Route: 042
     Dates: start: 20090914, end: 20100426
  25. DOXORUBICIN HCL [Suspect]
     Dosage: CYCLE 4
     Route: 042
     Dates: start: 20091116, end: 20091116
  26. DOXORUBICIN HCL [Suspect]
     Dosage: CYCLE 1
     Route: 042
     Dates: start: 20090817, end: 20090817
  27. DOXORUBICIN HCL [Suspect]
     Dosage: CYCLE 9
     Route: 042
     Dates: start: 20100426, end: 20100426
  28. ZANTAC [Suspect]
     Indication: PROPHYLAXIS
     Route: 048
     Dates: end: 20100121
  29. ZANTAC [Suspect]
     Route: 048
     Dates: end: 20100429
  30. UREPEARL [Concomitant]
     Indication: PROPHYLAXIS
     Route: 061
  31. DOXORUBICIN HCL [Suspect]
     Dosage: CYCLE 8
     Route: 042
     Dates: start: 20100324, end: 20100324
  32. PARAPLATIN [Suspect]
     Indication: OVARIAN CANCER RECURRENT
     Route: 042
     Dates: start: 20090914, end: 20100426
  33. DOXORUBICIN HCL [Suspect]
     Indication: OVARIAN CANCER RECURRENT
     Dosage: CYCLE 7
     Route: 042
     Dates: start: 20100215, end: 20100215
  34. DOXORUBICIN HCL [Suspect]
     Dosage: CYCLE 6
     Route: 042
     Dates: start: 20100118, end: 20100118
  35. UREPEARL [Concomitant]
     Indication: PALMAR-PLANTAR ERYTHRODYSAESTHESIA SYNDROME
     Route: 061
  36. DECADRON [Concomitant]
     Route: 042
     Dates: start: 20090817, end: 20090817

REACTIONS (1)
  - NEUROPATHY PERIPHERAL [None]
